FAERS Safety Report 8317926 (Version 2)
Quarter: 2014Q4

REPORT INFORMATION
  Report Type: Report from Study
  Country: US (occurrence: US)
  Receive Date: 20120102
  Receipt Date: 20141202
  Transmission Date: 20150529
  Serious: Yes (Death, Hospitalization)
  Sender: FDA-Public Use
  Company Number: US-ROCHE-1026259

PATIENT
  Sex: Female

DRUGS (3)
  1. RIBAVIRIN. [Suspect]
     Active Substance: RIBAVIRIN
     Indication: CHRONIC HEPATITIS C
     Route: 065
     Dates: start: 20110419, end: 20111108
  2. PEGASYS [Suspect]
     Active Substance: PEGINTERFERON ALFA-2A
     Indication: CHRONIC HEPATITIS C
     Route: 065
     Dates: start: 20110419, end: 20111108
  3. RIBAVIRIN. [Suspect]
     Active Substance: RIBAVIRIN
     Route: 065

REACTIONS (13)
  - Pyrexia [Unknown]
  - Peripheral swelling [Unknown]
  - Decreased appetite [Unknown]
  - Oropharyngeal pain [Recovered/Resolved]
  - Dysphonia [Recovered/Resolved]
  - Insomnia [Unknown]
  - Red blood cell count decreased [Unknown]
  - Asthenia [Unknown]
  - Cough [Recovered/Resolved]
  - Scab [Unknown]
  - Fatigue [Unknown]
  - Death [Fatal]
  - White blood cell count decreased [Unknown]
